FAERS Safety Report 11028291 (Version 2)
Quarter: 2015Q2

REPORT INFORMATION
  Report Type: Spontaneous
  Country: US (occurrence: US)
  Receive Date: 20150414
  Receipt Date: 20150525
  Transmission Date: 20150821
  Serious: No
  Sender: FDA-Public Use
  Company Number: US-JNJFOC-20120303046

PATIENT
  Age: 29 Year
  Sex: Female
  Weight: 61.24 kg

DRUGS (4)
  1. ORTHO TRI CYCLEN [Suspect]
     Active Substance: ETHINYL ESTRADIOL\NORGESTIMATE
     Indication: CONTRACEPTION
     Route: 048
     Dates: start: 201202
  2. ZYPREXA [Concomitant]
     Active Substance: OLANZAPINE
     Indication: TACHYPHRENIA
     Route: 048
     Dates: start: 2012, end: 2012
  3. PRISTIQ EXTENDED RELEASE [Concomitant]
     Active Substance: DESVENLAFAXINE SUCCINATE
     Indication: DEPRESSION
     Route: 048
     Dates: start: 2012, end: 2012
  4. ZYPREXA [Concomitant]
     Active Substance: OLANZAPINE
     Indication: DRUG THERAPY
     Route: 048
     Dates: start: 2012, end: 2012

REACTIONS (3)
  - Uterine spasm [Unknown]
  - Vaginal haemorrhage [Recovered/Resolved]
  - Vaginal discharge [Not Recovered/Not Resolved]

NARRATIVE: CASE EVENT DATE: 20120303
